FAERS Safety Report 8165671-5 (Version None)
Quarter: 2012Q1

REPORT INFORMATION
  Report Type: 
  Country: None (occurrence: None)
  Receive Date: 20120223
  Receipt Date: 20120223
  Transmission Date: 20120608
  Serious: Yes (Hospitalization, Disabling)
  Sender: FDA-Public Use
  Company Number: None

PATIENT
  Sex: Male
  Weight: 90.7194 kg

DRUGS (1)
  1. DULERA [Suspect]
     Indication: ASTHMA
     Dosage: 1 SPRAY EACH MORNING 2 MONTHS
     Route: 045
     Dates: start: 20110101, end: 20110301

REACTIONS (5)
  - BACK DISORDER [None]
  - PAIN [None]
  - SINUS DISORDER [None]
  - ARTHRITIS [None]
  - MUSCLE DISORDER [None]
